FAERS Safety Report 15410325 (Version 1)
Quarter: 2018Q3

REPORT INFORMATION
  Report Type: Report from Study
  Country: RU (occurrence: RU)
  Receive Date: 20180921
  Receipt Date: 20180921
  Transmission Date: 20181010
  Serious: Yes (Other)
  Sender: FDA-Public Use
  Company Number: RU-ASTRAZENECA-2018SE86193

PATIENT
  Age: 66 Year
  Sex: Female
  Weight: 69 kg

DRUGS (9)
  1. PRESTARIUM A [Suspect]
     Active Substance: PERINDOPRIL ARGININE
     Route: 065
  2. MEXIDOL [Concomitant]
  3. BISOPROLOL [Concomitant]
     Active Substance: BISOPROLOL
  4. BETAHISTINE [Concomitant]
     Active Substance: BETAHISTINE
  5. NOLPAZA [Concomitant]
     Active Substance: PANTOPRAZOLE SODIUM
  6. BRILINTA [Suspect]
     Active Substance: TICAGRELOR
     Indication: ANGINA UNSTABLE
     Route: 048
     Dates: start: 20180521
  7. ROSUVASTATIN. [Concomitant]
     Active Substance: ROSUVASTATIN
  8. CARDIOMAGNYL [Concomitant]
     Active Substance: ASPIRIN\MAGNESIUM HYDROXIDE
  9. VEROSPIRON [Concomitant]
     Active Substance: SPIRONOLACTONE

REACTIONS (8)
  - Low density lipoprotein increased [Not Recovered/Not Resolved]
  - Blood pressure decreased [Not Recovered/Not Resolved]
  - Vascular stent stenosis [Not Recovered/Not Resolved]
  - Contusion [Not Recovered/Not Resolved]
  - Haemoglobin increased [Not Recovered/Not Resolved]
  - Blood potassium increased [Not Recovered/Not Resolved]
  - Platelet count increased [Not Recovered/Not Resolved]
  - Blood glucose increased [Not Recovered/Not Resolved]

NARRATIVE: CASE EVENT DATE: 201805
